FAERS Safety Report 7301162-9 (Version None)
Quarter: 2011Q1

REPORT INFORMATION
  Report Type: 
  Country: None (occurrence: None)
  Receive Date: 20110218
  Receipt Date: 20101220
  Transmission Date: 20110831
  Serious: Yes (Hospitalization)
  Sender: FDA-Public Use
  Company Number: US-BAYER-201036852NA

PATIENT
  Sex: Female
  Weight: 61.364 kg

DRUGS (10)
  1. YASMIN [Suspect]
     Indication: CONTRACEPTION
     Route: 048
     Dates: start: 20001201, end: 20080101
  2. YASMIN [Suspect]
     Dosage: UNK
     Dates: start: 20051206, end: 20061209
  3. WELLBUTRIN [Concomitant]
  4. YASMIN [Suspect]
     Dosage: UNK
     Dates: start: 20040906, end: 20050626
  5. XANAX [Concomitant]
  6. LAMICTAL [Concomitant]
  7. VICODIN [Concomitant]
     Indication: PAIN
     Dates: start: 20080928
  8. YAZ [Suspect]
     Indication: CONTRACEPTION
     Dosage: UNK UNK, QD
     Route: 048
     Dates: start: 20001201, end: 20080101
  9. YAZ [Suspect]
     Dosage: UNK
     Dates: start: 20070304, end: 20080130
  10. ZOLOFT [Concomitant]

REACTIONS (6)
  - DIARRHOEA [None]
  - CHOLELITHIASIS [None]
  - VOMITING [None]
  - CHOLECYSTITIS CHRONIC [None]
  - NAUSEA [None]
  - ABDOMINAL PAIN UPPER [None]
